FAERS Safety Report 17841059 (Version 6)
Quarter: 2020Q2

REPORT INFORMATION
  Report Type: Spontaneous
  Country: US (occurrence: US)
  Receive Date: 20200529
  Receipt Date: 20200618
  Transmission Date: 20200714
  Serious: Yes (Other)
  Sender: FDA-Public Use
  Company Number: US-PFIZER INC-2020210423

PATIENT
  Age: 78 Year
  Sex: Female
  Weight: 63.05 kg

DRUGS (3)
  1. ELIQUIS [Suspect]
     Active Substance: APIXABAN
     Indication: ATRIAL FIBRILLATION
     Dosage: 2.5 MG, 2X/DAY
     Route: 048
  2. LETROZOLE. [Concomitant]
     Active Substance: LETROZOLE
     Dosage: UNK
     Route: 065
  3. IBRANCE [Suspect]
     Active Substance: PALBOCICLIB
     Indication: BREAST CANCER METASTATIC
     Dosage: 125 MG, CYCLIC (125MG FOR THREE WEEKS DAILY AND THEN OFF FOR 7 DAYS)
     Dates: start: 2018

REACTIONS (4)
  - Cellulitis [Recovered/Resolved]
  - Lower respiratory tract infection [Unknown]
  - Respiratory tract congestion [Unknown]
  - Nasopharyngitis [Unknown]
